FAERS Safety Report 5325109-X (Version None)
Quarter: 2007Q2

REPORT INFORMATION
  Report Type: 
  Country: None (occurrence: None)
  Receive Date: 20070511
  Receipt Date: 20070511
  Transmission Date: 20071010
  Serious: No
  Sender: FDA-Public Use
  Company Number: None

PATIENT
  Age: 25 Year
  Sex: Male

DRUGS (1)
  1. SYNTHROID [Suspect]
     Dosage: ORAL; 88.0 MICROGRAM
     Route: 048
     Dates: start: 20070427, end: 20070504

REACTIONS (4)
  - DYSPHAGIA [None]
  - THROAT IRRITATION [None]
  - THROAT TIGHTNESS [None]
  - URTICARIA [None]
